FAERS Safety Report 17632231 (Version 1)
Quarter: 2020Q2

REPORT INFORMATION
  Report Type: Spontaneous
  Country: US (occurrence: US)
  Receive Date: 20200403
  Receipt Date: 20200403
  Transmission Date: 20200713
  Serious: No
  Sender: FDA-Public Use
  Company Number: None

PATIENT
  Age: 71 Year
  Sex: Female
  Weight: 70.76 kg

DRUGS (3)
  1. PAXIL [Concomitant]
     Active Substance: PAROXETINE HYDROCHLORIDE
  2. APPLE CIDER VINEGAR GUMMIES [Concomitant]
  3. TRI-LUMA [Suspect]
     Active Substance: FLUOCINOLONE ACETONIDE\HYDROQUINONE\TRETINOIN
     Indication: SKIN DISCOLOURATION
     Dosage: ?          OTHER STRENGTH:0.01-4;QUANTITY:30 APPLICATIONS ;OTHER FREQUENCY:1X AT BEDTIME;OTHER ROUTE:ON THE SHINS ABOVE TOP LIP?
     Route: 061
     Dates: start: 20200201, end: 20200214

REACTIONS (3)
  - Application site erythema [None]
  - Application site pruritus [None]
  - Skin exfoliation [None]

NARRATIVE: CASE EVENT DATE: 20200214
